FAERS Safety Report 14974936 (Version 2)
Quarter: 2018Q2

REPORT INFORMATION
  Report Type: Report from Study
  Country: BR (occurrence: BR)
  Receive Date: 20180605
  Receipt Date: 20180620
  Transmission Date: 20180711
  Serious: Yes (Death, Other)
  Sender: FDA-Public Use
  Company Number: BR-BAYER-2018-101441

PATIENT
  Age: 64 Year
  Sex: Male

DRUGS (1)
  1. BETAFERON [Suspect]
     Active Substance: INTERFERON BETA-1B
     Indication: MULTIPLE SCLEROSIS
     Dates: start: 20060801

REACTIONS (5)
  - Cerebrovascular accident [None]
  - General physical health deterioration [Not Recovered/Not Resolved]
  - Aortic stenosis [None]
  - Blood triglycerides increased [Recovered/Resolved]
  - Cardiogenic shock [Fatal]

NARRATIVE: CASE EVENT DATE: 2016
